FAERS Safety Report 16717766 (Version 1)
Quarter: 2019Q3

REPORT INFORMATION
  Report Type: Spontaneous
  Country: DE (occurrence: DE)
  Receive Date: 20190819
  Receipt Date: 20190819
  Transmission Date: 20191005
  Serious: Yes (Other)
  Sender: FDA-Public Use
  Company Number: PHHY2019DE189068

PATIENT

DRUGS (2)
  1. COSENTYX [Suspect]
     Active Substance: SECUKINUMAB
     Dosage: 300 MG, Q4W (TWO 150 MG INJECTIONS, EVERY 4 WEEKS, UNTIL 44 WEEKS)
     Route: 058
  2. COSENTYX [Suspect]
     Active Substance: SECUKINUMAB
     Dosage: 300 MG, QW (TWO 150 MG INJECTIONS AT WEEKS 0, 1, 2, 3 AND 4)
     Route: 058

REACTIONS (1)
  - Crohn^s disease [Unknown]
